FAERS Safety Report 16645514 (Version 1)
Quarter: 2019Q3

REPORT INFORMATION
  Report Type: Report from Study
  Country: None (occurrence: US)
  Receive Date: 20190730
  Receipt Date: 20190730
  Transmission Date: 20191004
  Serious: Yes (Other)
  Sender: FDA-Public Use
  Company Number: US-ABBVIE-17K-163-2198145-00

PATIENT
  Sex: Female

DRUGS (2)
  1. HUMIRA [Suspect]
     Active Substance: ADALIMUMAB
     Indication: PSORIATIC ARTHROPATHY
  2. HUMIRA [Suspect]
     Active Substance: ADALIMUMAB
     Indication: RHEUMATOID ARTHRITIS
     Route: 058

REACTIONS (37)
  - Allergic respiratory symptom [Unknown]
  - Bone disorder [Unknown]
  - Upper respiratory tract infection [Unknown]
  - Oral candidiasis [Unknown]
  - Nodule [Unknown]
  - Sinus disorder [Unknown]
  - Arthralgia [Unknown]
  - Psoriasis [Unknown]
  - Increased upper airway secretion [Unknown]
  - Thyroid mass [Unknown]
  - Stomatitis [Unknown]
  - Tendonitis [Unknown]
  - Musculoskeletal stiffness [Unknown]
  - Abdominal pain [Unknown]
  - Dyspepsia [Unknown]
  - Joint swelling [Unknown]
  - Malaise [Unknown]
  - Dyspepsia [Unknown]
  - Dyspnoea [Not Recovered/Not Resolved]
  - Pain in extremity [Not Recovered/Not Resolved]
  - Chest pain [Unknown]
  - Back pain [Unknown]
  - Dysphagia [Unknown]
  - Goitre [Unknown]
  - Oral mucosal blistering [Unknown]
  - Lacrimation increased [Unknown]
  - Dyspnoea at rest [Unknown]
  - Hypersensitivity [Unknown]
  - Joint stiffness [Not Recovered/Not Resolved]
  - Blister [Unknown]
  - Swelling face [Unknown]
  - Rash [Unknown]
  - Uterine leiomyoma [Unknown]
  - Fatigue [Not Recovered/Not Resolved]
  - Dry mouth [Unknown]
  - Back pain [Unknown]
  - Arthralgia [Recovered/Resolved]

NARRATIVE: CASE EVENT DATE: 2016
